FAERS Safety Report 25651093 (Version 1)
Quarter: 2025Q3

REPORT INFORMATION
  Report Type: Spontaneous
  Country: AU (occurrence: AU)
  Receive Date: 20250806
  Receipt Date: 20250806
  Transmission Date: 20251021
  Serious: Yes (Other)
  Sender: ALEXION PHARMACEUTICALS
  Company Number: AU-ASTRAZENECA-202507GLO029177AU

PATIENT
  Age: 68 Year
  Sex: Female

DRUGS (9)
  1. ROSUVASTATIN [Suspect]
     Active Substance: ROSUVASTATIN
     Route: 065
  2. ALDACTONE [Suspect]
     Active Substance: SPIRONOLACTONE
     Route: 065
  3. LEXAPRO [Suspect]
     Active Substance: ESCITALOPRAM OXALATE
     Route: 065
  4. OXIS [Suspect]
     Active Substance: FORMOTEROL FUMARATE
     Route: 065
  5. PULMICORT TURBUHALER [Suspect]
     Active Substance: BUDESONIDE
     Route: 065
  6. CARBIMAZOLE [Suspect]
     Active Substance: CARBIMAZOLE
     Route: 065
  7. LAMOTRIGINE [Suspect]
     Active Substance: LAMOTRIGINE
     Route: 065
  8. TIBOLONE [Suspect]
     Active Substance: TIBOLONE
     Route: 065
  9. WEGOVY [Suspect]
     Active Substance: SEMAGLUTIDE
     Route: 065

REACTIONS (2)
  - Depression [Recovered/Resolved]
  - Suicidal ideation [Recovered/Resolved]
